FAERS Safety Report 20683121 (Version 1)
Quarter: 2022Q2

REPORT INFORMATION
  Report Type: Spontaneous
  Country: US (occurrence: US)
  Receive Date: 20220407
  Receipt Date: 20220407
  Transmission Date: 20220721
  Serious: Yes (Death, Life-Threatening, Hospitalization, Other)
  Sender: FDA-Public Use
  Company Number: US-AMGEN-USASP2022057118

PATIENT
  Age: 45 Year
  Sex: Female

DRUGS (3)
  1. XGEVA [Suspect]
     Active Substance: DENOSUMAB
     Indication: Metastases to bone
     Dosage: UNK
     Route: 065
  2. DABRAFENIB [Concomitant]
     Active Substance: DABRAFENIB
  3. TRAMETINIB [Concomitant]
     Active Substance: TRAMETINIB

REACTIONS (6)
  - Death [Fatal]
  - Respiratory failure [Not Recovered/Not Resolved]
  - Metastatic malignant melanoma [Not Recovered/Not Resolved]
  - Haemoperitoneum [Not Recovered/Not Resolved]
  - Hepatic haemorrhage [Not Recovered/Not Resolved]
  - Gastrointestinal haemorrhage [Not Recovered/Not Resolved]
